FAERS Safety Report 7755565-9 (Version None)
Quarter: 2011Q3

REPORT INFORMATION
  Report Type: 
  Country: None (occurrence: None)
  Receive Date: 20110915
  Receipt Date: 20110915
  Transmission Date: 20111222
  Serious: Yes (Hospitalization)
  Sender: FDA-Public Use
  Company Number: None

PATIENT
  Sex: Male
  Weight: 115.5 kg

DRUGS (1)
  1. NEXAVAR [Suspect]
     Dosage: 2 TAB TWICE A DAY BY MOUTH
     Route: 048
     Dates: start: 20110803, end: 20110817

REACTIONS (3)
  - HICCUPS [None]
  - DIARRHOEA [None]
  - DYSPNOEA [None]
